FAERS Safety Report 6194077-3 (Version None)
Quarter: 2009Q2

REPORT INFORMATION
  Report Type: 
  Country: None (occurrence: None)
  Receive Date: 20090518
  Receipt Date: 20090512
  Transmission Date: 20091009
  Serious: Yes (Hospitalization)
  Sender: FDA-Public Use
  Company Number: BR-ABBOTT-09P-020-0570561-00

PATIENT
  Sex: Female
  Weight: 85 kg

DRUGS (2)
  1. HUMIRA [Suspect]
     Indication: RHEUMATOID ARTHRITIS
     Route: 058
     Dates: start: 20080618, end: 20090201
  2. FLUOXETINE HCL [Concomitant]
     Indication: DEPRESSION

REACTIONS (7)
  - GINGIVAL INFECTION [None]
  - OSTEOPOROSIS [None]
  - PAIN [None]
  - PNEUMONIA [None]
  - TOOTH EXTRACTION [None]
  - URINARY TRACT INFECTION [None]
  - VASCULITIS [None]
